FAERS Safety Report 9378173 (Version 1)
Quarter: 2013Q3

REPORT INFORMATION
  Report Type: Spontaneous
  Country: US (occurrence: US)
  Receive Date: 20130701
  Receipt Date: 20130701
  Transmission Date: 20140515
  Serious: Yes (Other)
  Sender: FDA-Public Use
  Company Number: US-GLAXOSMITHKLINE-B0903569A

PATIENT
  Age: 45 Year
  Sex: Male

DRUGS (5)
  1. PAROXETINE [Suspect]
     Indication: DEPRESSION
     Dosage: 12.5MG PER DAY
     Route: 065
  2. ZOLPIDEM [Suspect]
     Indication: DEPRESSION
     Route: 048
  3. LORAZEPAM [Concomitant]
     Indication: DEPRESSION
     Dosage: 1MG TWICE PER DAY
  4. QUETIAPINE [Concomitant]
     Indication: DEPRESSION
     Dosage: 25MG PER DAY
  5. ELECTROCONVULSIVE THERAPY [Concomitant]

REACTIONS (16)
  - Homicide [Unknown]
  - Drug interaction [Unknown]
  - Abnormal behaviour [Unknown]
  - Insomnia [Unknown]
  - Agitation [Unknown]
  - Emotional distress [Unknown]
  - Amnesia [Unknown]
  - Confusional state [Unknown]
  - Speech disorder [Unknown]
  - Incoherent [Unknown]
  - Catatonia [Unknown]
  - Glassy eyes [Unknown]
  - Thinking abnormal [Unknown]
  - Convulsion [Unknown]
  - Aggression [Unknown]
  - Staring [Unknown]
